FAERS Safety Report 4690408-1 (Version None)
Quarter: 2005Q2

REPORT INFORMATION
  Report Type: 
  Country: None (occurrence: None)
  Receive Date: 20050615
  Receipt Date: 20050525
  Transmission Date: 20051028
  Serious: Yes (Other)
  Sender: FDA-Public Use
  Company Number: AU-SANOFI-SYNTHELABO-A01200503665

PATIENT

DRUGS (5)
  1. STILNOX [Suspect]
     Indication: DRUG USE FOR UNKNOWN INDICATION
     Dosage: UNK
     Route: 048
  2. EFFEXOR [Concomitant]
     Indication: DRUG USE FOR UNKNOWN INDICATION
     Dosage: UNK
     Route: 065
  3. PROTHIADEN [Concomitant]
     Dosage: UNK
     Route: 065
  4. LITHIUM [Concomitant]
     Dosage: UNK
     Route: 065
  5. OLANZAPINE [Concomitant]
     Dosage: UNK
     Route: 065

REACTIONS (1)
  - DELIRIUM [None]
